FAERS Safety Report 12328999 (Version 2)
Quarter: 2016Q4

REPORT INFORMATION
  Report Type: Spontaneous
  Country: DK (occurrence: DK)
  Receive Date: 20160503
  Receipt Date: 20161005
  Transmission Date: 20170207
  Serious: Yes (Other)
  Sender: FDA-Public Use
  Company Number: DK-AMGEN-DNKSP2016054309

PATIENT
  Sex: Female

DRUGS (2)
  1. HUSK [Concomitant]
     Dosage: UNK
  2. REPATHA [Suspect]
     Active Substance: EVOLOCUMAB
     Indication: TYPE IIA HYPERLIPIDAEMIA
     Dosage: 140 MG, UNK
     Route: 058

REACTIONS (13)
  - Injection site pain [Unknown]
  - Faeces soft [Unknown]
  - Rhinorrhoea [Unknown]
  - Increased tendency to bruise [Unknown]
  - Haemorrhagic diathesis [Unknown]
  - Sneezing [Unknown]
  - Influenza like illness [Unknown]
  - Hyperaesthesia [Unknown]
  - Fatigue [Unknown]
  - Injection site pruritus [Unknown]
  - Faeces discoloured [Unknown]
  - Malaise [Unknown]
  - Injection site swelling [Unknown]
